FAERS Safety Report 11802476 (Version 5)
Quarter: 2016Q1

REPORT INFORMATION
  Report Type: Report from Study
  Country: US (occurrence: US)
  Receive Date: 20151204
  Receipt Date: 20160304
  Transmission Date: 20160525
  Serious: Yes (Other)
  Sender: FDA-Public Use
  Company Number: US-AMGEN-USASL2015122069

PATIENT
  Age: 64 Year
  Sex: Male

DRUGS (1)
  1. REPATHA [Suspect]
     Active Substance: EVOLOCUMAB
     Indication: DRUG INTOLERANCE
     Dosage: 140 MG, Q2WK
     Route: 065
     Dates: start: 20151005

REACTIONS (43)
  - Hypersensitivity [Recovering/Resolving]
  - Fatigue [Unknown]
  - Hyperhidrosis [Recovering/Resolving]
  - Pain in extremity [Recovering/Resolving]
  - Device issue [Unknown]
  - Sneezing [Recovering/Resolving]
  - Blood glucose increased [Recovering/Resolving]
  - Muscle atrophy [Recovering/Resolving]
  - Influenza [Not Recovered/Not Resolved]
  - Feeling abnormal [Recovering/Resolving]
  - Malaise [Unknown]
  - Dyspnoea [Recovering/Resolving]
  - Muscular weakness [Recovering/Resolving]
  - Influenza like illness [Not Recovered/Not Resolved]
  - Myalgia [Recovering/Resolving]
  - White blood cell count decreased [Recovering/Resolving]
  - Blood thyroid stimulating hormone decreased [Recovering/Resolving]
  - Activities of daily living impaired [Recovering/Resolving]
  - Musculoskeletal stiffness [Recovering/Resolving]
  - Discomfort [Unknown]
  - Headache [Unknown]
  - Nasopharyngitis [Recovering/Resolving]
  - Arthralgia [Unknown]
  - Protein total decreased [Recovering/Resolving]
  - Blood alkaline phosphatase decreased [Recovering/Resolving]
  - Off label use [Unknown]
  - Memory impairment [Unknown]
  - Pain [Unknown]
  - Tremor [Recovering/Resolving]
  - Asthenia [Recovering/Resolving]
  - Globulins decreased [Recovering/Resolving]
  - Red blood cell count decreased [Recovering/Resolving]
  - Haemoglobin decreased [Recovering/Resolving]
  - Haematocrit decreased [Recovering/Resolving]
  - Impaired work ability [Recovering/Resolving]
  - Musculoskeletal discomfort [Unknown]
  - Weight decreased [Recovering/Resolving]
  - Sleep disorder [Recovering/Resolving]
  - Confusional state [Unknown]
  - Spinal pain [Recovering/Resolving]
  - Dysphonia [Recovering/Resolving]
  - Nervousness [Recovering/Resolving]
  - Neutrophil count decreased [Recovering/Resolving]

NARRATIVE: CASE EVENT DATE: 2015
